FAERS Safety Report 9657460 (Version 1)
Quarter: 2013Q4

REPORT INFORMATION
  Report Type: Spontaneous
  Country: NL (occurrence: NL)
  Receive Date: 20131030
  Receipt Date: 20131030
  Transmission Date: 20140711
  Serious: Yes (Hospitalization)
  Sender: FDA-Public Use
  Company Number: NL-PFIZER INC-2013309479

PATIENT
  Age: 58 Year
  Sex: Male
  Weight: 100 kg

DRUGS (5)
  1. CELEBREX [Suspect]
     Indication: ARTHRITIS
     Dosage: 100 MG, 3X/DAY
     Dates: start: 20110101
  2. CELEBREX [Suspect]
     Indication: FIBROMYALGIA
  3. CELEBREX [Suspect]
     Indication: PAIN
  4. FENTANYL [Concomitant]
     Dosage: 1 DF, EVERY 3 DAYS
     Dates: start: 20100101
  5. LOSEC [Concomitant]
     Dosage: 80 MG, 2X/DAY
     Dates: start: 19800101

REACTIONS (4)
  - Osteoarthritis [Not Recovered/Not Resolved]
  - Pain [Not Recovered/Not Resolved]
  - Therapeutic product ineffective [Not Recovered/Not Resolved]
  - Fluid retention [Not Recovered/Not Resolved]
